FAERS Safety Report 7905794-6 (Version None)
Quarter: 2011Q4

REPORT INFORMATION
  Report Type: 
  Country: None (occurrence: None)
  Receive Date: 20111110
  Receipt Date: 20111101
  Transmission Date: 20120403
  Serious: Yes (Other)
  Sender: FDA-Public Use
  Company Number: CA-JNJFOC-20111103180

PATIENT
  Sex: Male
  Weight: 90 kg

DRUGS (14)
  1. FERROUS SULFATE TAB [Concomitant]
  2. RENEDIL [Concomitant]
  3. REMICADE [Suspect]
     Indication: CROHN'S DISEASE
     Route: 042
     Dates: start: 20090901
  4. HYDROMORPH [Concomitant]
  5. ATENOLOL [Concomitant]
  6. FLUVOXAMINE MALEATE [Concomitant]
  7. FOLIC ACID [Concomitant]
  8. REMICADE [Suspect]
     Indication: RHEUMATOID ARTHRITIS
     Route: 042
     Dates: start: 20090901
  9. MELOXICAM [Concomitant]
  10. ALTACE [Concomitant]
  11. METHOTREXATE [Concomitant]
     Route: 048
  12. CRESTOR [Concomitant]
  13. GLICLAZIDE [Concomitant]
  14. HYZAAR [Concomitant]
     Dosage: 50/12.5 DAILY

REACTIONS (3)
  - HIP ARTHROPLASTY [None]
  - WOUND INFECTION [None]
  - KNEE ARTHROPLASTY [None]
